FAERS Safety Report 9454368 (Version 1)
Quarter: 2013Q3

REPORT INFORMATION
  Report Type: Report from Study
  Country: US (occurrence: US)
  Receive Date: 20130812
  Receipt Date: 20130812
  Transmission Date: 20140515
  Serious: Yes (Other)
  Sender: FDA-Public Use
  Company Number: US-CELGENEUS-163-C4047-13081243

PATIENT
  Sex: 0

DRUGS (2)
  1. CC-4047 [Suspect]
     Indication: MYELOFIBROSIS
     Dosage: .5 MILLIGRAM
     Route: 048
  2. CC-4047 [Suspect]
     Indication: ANAEMIA

REACTIONS (2)
  - Generalised oedema [Unknown]
  - Rash [Unknown]
